FAERS Safety Report 15525288 (Version 2)
Quarter: 2018Q4

REPORT INFORMATION
  Report Type: Spontaneous
  Country: US (occurrence: US)
  Receive Date: 20181018
  Receipt Date: 20181116
  Transmission Date: 20190205
  Serious: No
  Sender: FDA-Public Use
  Company Number: US-GLAXOSMITHKLINE-US2018186382

PATIENT
  Sex: Female
  Weight: 72.56 kg

DRUGS (1)
  1. VENTOLIN HFA [Suspect]
     Active Substance: ALBUTEROL SULFATE
     Indication: BRONCHITIS
     Dosage: 2 PUFF(S) Q4HRS, UNK
     Route: 055

REACTIONS (2)
  - Underdose [Unknown]
  - Wrong technique in device usage process [Unknown]
